FAERS Safety Report 14447957 (Version 2)
Quarter: 2018Q2

REPORT INFORMATION
  Report Type: Spontaneous
  Country: US (occurrence: US)
  Receive Date: 20180126
  Receipt Date: 20180430
  Transmission Date: 20180711
  Serious: No
  Sender: FDA-Public Use
  Company Number: US-BRACCO DIAGNOSTICS, INC.-2017US05303

PATIENT
  Sex: Male

DRUGS (1)
  1. READI-CAT 2 [Suspect]
     Active Substance: BARIUM SULFATE
     Indication: COMPUTERISED TOMOGRAM ABDOMEN
     Dosage: 450 ML, SINGLE
     Route: 048
     Dates: start: 20171107, end: 20171107

REACTIONS (3)
  - Product container issue [Unknown]
  - Product contamination physical [Unknown]
  - Manufacturing production issue [Unknown]

NARRATIVE: CASE EVENT DATE: 20171107
